FAERS Safety Report 10055110 (Version 2)
Quarter: 2014Q2

REPORT INFORMATION
  Report Type: Spontaneous
  Country: US (occurrence: US)
  Receive Date: 20140402
  Receipt Date: 20140402
  Transmission Date: 20141212
  Serious: Yes (Other)
  Sender: FDA-Public Use
  Company Number: US-SANOFI-AVENTIS-2013SA040460

PATIENT
  Age: 32 Year
  Sex: Female
  Weight: 86.2 kg

DRUGS (17)
  1. AUBAGIO [Suspect]
     Indication: MULTIPLE SCLEROSIS
     Route: 048
     Dates: start: 201210, end: 20130402
  2. BUPROPION HYDROCHLORIDE [Concomitant]
     Dosage: STERNGTH: 300 MG 24HR?FILLED
     Dates: start: 20130325
  3. CLONAZEPAM [Concomitant]
     Dosage: STRENGTH: 1MG?FILLED
     Dates: start: 20130328
  4. CYCLOBENZAPRINE [Concomitant]
     Dosage: STRENGTH:10 MG?FILLED
     Dates: start: 20130320
  5. DIAZEPAM [Concomitant]
     Dosage: FREQUENCY: TWICE A DAY AS NEEDED?STRENGTH: 10 MG?FILLED
     Route: 048
     Dates: start: 20130307
  6. DICLOFENAC SODIUM [Concomitant]
     Dosage: STRENGTH: 75 MG?DELAYED RELEASE?FILLED
     Dates: start: 20130222
  7. FLUTICASONE [Concomitant]
     Dosage: 50 MCG/ACTUATION NASAL SPRAY, SUSP?FILLED
     Dates: start: 20130307
  8. LINZESS [Concomitant]
     Dosage: STRENGTH: 145 MCG?FILLLED
     Dates: start: 20130307
  9. MIRTAZAPINE [Concomitant]
     Dosage: STRENGTH: 15 MG FILLED
     Dates: start: 20130313
  10. OMEPRAZOLE [Concomitant]
     Dosage: STRENGTH: 20 MG?DELAYED RELEASE?FILLED
     Dates: start: 20130307
  11. PANTOPRAZOLE [Concomitant]
     Dosage: STRENGTH: 40 MG ?DELAYED RELEASE ?FILLED?STOPPED BY PCP
     Dates: start: 20120830
  12. RELPAX [Concomitant]
     Dosage: STRENGTH: 40 MG?AS DIRECTED?FILLED
     Dates: start: 20130319
  13. SERTRALINE [Concomitant]
     Dosage: STRENGTH: 100 MG?FILLED
     Dates: start: 20130328
  14. SERTRALINE [Concomitant]
     Dosage: STRENGTH: 25 MG?FILLED
     Dates: start: 20130313
  15. TOPAMAX [Concomitant]
     Dosage: STRENGTH: 50 MG?FILLED
     Dates: start: 20130310
  16. TRAMADOL [Concomitant]
     Dosage: STRENGTH: 50 MG?FILLED
     Dates: start: 20120907
  17. VERAPAMIL [Concomitant]
     Dosage: STRENGTH: 40 MG?PRESCRIBED
     Route: 048
     Dates: start: 20130304

REACTIONS (2)
  - Hepatitis [Unknown]
  - Hepatic enzyme increased [Recovered/Resolved]
